FAERS Safety Report 7591143-2 (Version None)
Quarter: 2011Q3

REPORT INFORMATION
  Report Type: 
  Country: None (occurrence: None)
  Receive Date: 20110705
  Receipt Date: 20110628
  Transmission Date: 20111222
  Serious: Yes (Death)
  Sender: FDA-Public Use
  Company Number: CN-ASTRAZENECA-2011SE38247

PATIENT
  Age: 43 Year
  Sex: Male

DRUGS (1)
  1. LIDOCAINE [Suspect]
     Route: 042

REACTIONS (2)
  - OVERDOSE [None]
  - CARDIAC FAILURE [None]
